FAERS Safety Report 10475895 (Version 3)
Quarter: 2014Q4

REPORT INFORMATION
  Report Type: Spontaneous
  Country: US (occurrence: US)
  Receive Date: 20140925
  Receipt Date: 20141009
  Transmission Date: 20150528
  Serious: Yes (Other)
  Sender: FDA-Public Use
  Company Number: CHPA2014US012673

PATIENT
  Age: 62 Year
  Sex: Female

DRUGS (3)
  1. PREVACID [Suspect]
     Active Substance: LANSOPRAZOLE
     Indication: GASTROOESOPHAGEAL REFLUX DISEASE
     Dosage: ALMOST EVERY DAY
     Route: 048
     Dates: start: 2004
  2. PREVACID [Suspect]
     Active Substance: LANSOPRAZOLE
     Indication: OFF LABEL USE
  3. PREVACID [Suspect]
     Active Substance: LANSOPRAZOLE
     Indication: DYSPEPSIA

REACTIONS (4)
  - Incorrect drug administration duration [Unknown]
  - CREST syndrome [Not Recovered/Not Resolved]
  - Incorrect dose administered [Unknown]
  - Hand deformity [Unknown]
